FAERS Safety Report 19125532 (Version 2)
Quarter: 2021Q2

REPORT INFORMATION
  Report Type: Report from Study
  Country: US (occurrence: US)
  Receive Date: 20210412
  Receipt Date: 20210419
  Transmission Date: 20210717
  Serious: No
  Sender: FDA-Public Use
  Company Number: US-IPSEN BIOPHARMACEUTICALS, INC.-2021-09018

PATIENT
  Sex: Female

DRUGS (3)
  1. INCRELEX [Suspect]
     Active Substance: MECASERMIN
     Indication: SHORT STATURE
  2. INCRELEX [Suspect]
     Active Substance: MECASERMIN
     Indication: ANDROGEN INSENSITIVITY SYNDROME
     Route: 058
  3. INCRELEX [Suspect]
     Active Substance: MECASERMIN
     Indication: OFF LABEL USE

REACTIONS (3)
  - Product dose omission issue [Unknown]
  - Off label use [Unknown]
  - Therapeutic procedure [Unknown]
